FAERS Safety Report 6991895-6 (Version None)
Quarter: 2010Q3

REPORT INFORMATION
  Report Type: 
  Country: None (occurrence: None)
  Receive Date: 20100917
  Receipt Date: 20100907
  Transmission Date: 20110219
  Serious: Yes (Other)
  Sender: FDA-Public Use
  Company Number: US-PFIZER INC-2010113640

PATIENT
  Sex: Female
  Weight: 77.098 kg

DRUGS (10)
  1. CHANTIX [Suspect]
     Indication: SMOKING CESSATION THERAPY
     Dosage: 0.5 MG, 1X/DAY
     Route: 048
     Dates: start: 20070101
  2. CHANTIX [Suspect]
     Dosage: 0.5 MG, 2X/DAY
     Route: 048
  3. CHANTIX [Suspect]
     Dosage: UNK
     Route: 048
     Dates: end: 20080101
  4. CHANTIX [Suspect]
     Dosage: UNK
     Route: 048
     Dates: start: 20100901
  5. AMLODIPINE [Concomitant]
     Dosage: 5 MG, UNK
  6. COZAAR [Concomitant]
     Dosage: 100 MG, UNK
  7. SYNTHROID [Concomitant]
     Indication: HYPOTHYROIDISM
     Dosage: UNK
  8. BUMEX [Concomitant]
     Dosage: 5 MG, EVERY OTHER DAY
  9. ACETYLSALICYLIC ACID [Concomitant]
     Dosage: UNK
  10. XANAX [Concomitant]
     Indication: ANXIETY
     Dosage: 0.25 MG, UNK

REACTIONS (2)
  - EMPHYSEMA [None]
  - NERVOUSNESS [None]
